FAERS Safety Report 13857294 (Version 2)
Quarter: 2017Q3

REPORT INFORMATION
  Report Type: Report from Study
  Country: US (occurrence: US)
  Receive Date: 20170810
  Receipt Date: 20170829
  Transmission Date: 20171127
  Serious: No
  Sender: FDA-Public Use
  Company Number: US-ELI_LILLY_AND_COMPANY-US201708003201

PATIENT
  Age: 70 Year
  Sex: Female
  Weight: 66.4 kg

DRUGS (1)
  1. FLORBETAPIR [Suspect]
     Active Substance: FLORBETAPIR
     Indication: DIAGNOSTIC PROCEDURE
     Dosage: UNK, CYCLICAL
     Route: 042
     Dates: start: 20170803

REACTIONS (1)
  - Pain in extremity [Recovered/Resolved]

NARRATIVE: CASE EVENT DATE: 20170803
